FAERS Safety Report 5655944-X (Version None)
Quarter: 2008Q1

REPORT INFORMATION
  Report Type: 
  Country: None (occurrence: None)
  Receive Date: 20080307
  Receipt Date: 20080305
  Transmission Date: 20080703
  Serious: Yes (Life-Threatening, Hospitalization, Other)
  Sender: FDA-Public Use
  Company Number: GB-BOEHRINGER INGELHEIM GMBH, GERMANY-2007-UK-03205UK

PATIENT
  Age: 39 Year
  Sex: Female
  Weight: 45 kg

DRUGS (6)
  1. VIRAMUNE [Suspect]
     Indication: HIV INFECTION
     Dosage: 200X 2 DAY
     Route: 048
  2. DIDANOSINE [Suspect]
     Indication: HIV INFECTION
     Dates: start: 20011201
  3. LAMIVUDINE [Suspect]
     Indication: HIV INFECTION
     Dates: start: 20011201
  4. INDINIVIR SULFATE [Suspect]
  5. SEPTRIN [Concomitant]
     Indication: PROPHYLAXIS
     Route: 048
     Dates: start: 20071001
  6. OTHER RETROVIRALS [Concomitant]

REACTIONS (15)
  - ABDOMINAL DISTENSION [None]
  - ABDOMINAL PAIN [None]
  - BLOOD CREATINE PHOSPHOKINASE INCREASED [None]
  - BLOOD CREATININE INCREASED [None]
  - BLOOD LACTIC ACID INCREASED [None]
  - BLOOD PH DECREASED [None]
  - CANDIDIASIS [None]
  - CONSTIPATION [None]
  - ESCHERICHIA INFECTION [None]
  - HEPATIC FAILURE [None]
  - HYPOVENTILATION [None]
  - LACTIC ACIDOSIS [None]
  - MITOCHONDRIAL CYTOPATHY [None]
  - PORTAL VEIN THROMBOSIS [None]
  - SEPSIS [None]
